FAERS Safety Report 24315921 (Version 5)
Quarter: 2024Q4

REPORT INFORMATION
  Report Type: Spontaneous
  Country: BR (occurrence: BR)
  Receive Date: 20240913
  Receipt Date: 20241106
  Transmission Date: 20250114
  Serious: Yes (Other)
  Sender: CELLTRION
  Company Number: BR-CELLTRION INC.-2024BR021723

PATIENT

DRUGS (8)
  1. INFLIXIMAB [Suspect]
     Active Substance: INFLIXIMAB
     Indication: Colitis ulcerative
     Dosage: 3 AMPOULES OF 100MG EACH (300MG TOTAL) EVERY 4 WEEKS
     Route: 042
     Dates: start: 20240520
  2. INFLIXIMAB [Suspect]
     Active Substance: INFLIXIMAB
     Dosage: 3 AMPOULES OF 100MG EACH (300MG TOTAL) EVERY 4 WEEKS
     Route: 042
     Dates: start: 20240603
  3. INFLIXIMAB [Suspect]
     Active Substance: INFLIXIMAB
     Dosage: 3 AMPOULES OF 100MG EACH (300MG TOTAL) EVERY 4 WEEKS
     Route: 042
     Dates: start: 20240724
  4. INFLIXIMAB [Suspect]
     Active Substance: INFLIXIMAB
     Dosage: 3 AMPOULES OF 100MG EACH (300MG TOTAL) EVERY 4 WEEKS
     Route: 042
     Dates: start: 20240824
  5. INFLIXIMAB [Suspect]
     Active Substance: INFLIXIMAB
     Dosage: 3 AMPOULES OF 100MG EACH (300MG TOTAL) EVERY 4 WEEKS
     Route: 042
     Dates: start: 20240926
  6. MESALAMINE [Concomitant]
     Active Substance: MESALAMINE
     Indication: Product used for unknown indication
     Dosage: 3 TABLETS OF 800MG
     Route: 048
     Dates: start: 202311
  7. IVERMECTIN [Concomitant]
     Active Substance: IVERMECTIN
     Indication: Infestation
     Dosage: UNK
     Route: 048
  8. FLAGYL [Concomitant]
     Active Substance: METRONIDAZOLE\METRONIDAZOLE HYDROCHLORIDE
     Indication: Infestation
     Dosage: UNK
     Route: 048

REACTIONS (14)
  - Colitis ulcerative [Recovered/Resolved]
  - Pneumonia [Not Recovered/Not Resolved]
  - Antibiotic therapy [Not Recovered/Not Resolved]
  - Ocular hyperaemia [Not Recovered/Not Resolved]
  - Nausea [Not Recovered/Not Resolved]
  - Pain [Recovered/Resolved]
  - Viral infection [Not Recovered/Not Resolved]
  - Helminthic infection [Not Recovered/Not Resolved]
  - Therapeutic product effect decreased [Not Recovered/Not Resolved]
  - Intentional dose omission [Not Recovered/Not Resolved]
  - Intentional product use issue [Unknown]
  - Therapeutic response shortened [Unknown]
  - Therapeutic product effect variable [Unknown]
  - Drug interaction [Unknown]

NARRATIVE: CASE EVENT DATE: 20240924
